FAERS Safety Report 19078990 (Version 2)
Quarter: 2021Q2

REPORT INFORMATION
  Report Type: Spontaneous
  Country: US (occurrence: US)
  Receive Date: 20210331
  Receipt Date: 20210415
  Transmission Date: 20210717
  Serious: No
  Sender: FDA-Public Use
  Company Number: US-ALLERGAN-2113121US

PATIENT
  Sex: Male

DRUGS (3)
  1. HIGH CHOLESTEROL MED [Concomitant]
     Dosage: UNK UNK, QD
     Route: 048
  2. BYSTOLIC [Suspect]
     Active Substance: NEBIVOLOL HYDROCHLORIDE
     Indication: HYPERTENSION
     Dosage: 2.5 MG, QD
     Route: 048
  3. ELIQUIS [Concomitant]
     Active Substance: APIXABAN
     Indication: TRANSIENT ISCHAEMIC ATTACK

REACTIONS (1)
  - Dyspnoea [Not Recovered/Not Resolved]
